FAERS Safety Report 4300953-6 (Version None)
Quarter: 2004Q1

REPORT INFORMATION
  Report Type: 
  Country: None (occurrence: None)
  Receive Date: 20040219
  Receipt Date: 20040209
  Transmission Date: 20041129
  Serious: No
  Sender: FDA-Public Use
  Company Number: 04P-167-0250125-00

PATIENT
  Sex: Male

DRUGS (2)
  1. ERYTHROMYCIN [Suspect]
     Indication: PNEUMONIA
     Dosage: 1 GM, 1 IN 1 D ORAL
     Route: 048
     Dates: start: 20040116, end: 20040119
  2. PRAVASTATIN [Concomitant]

REACTIONS (2)
  - FATIGUE [None]
  - SUPRAVENTRICULAR TACHYCARDIA [None]
